FAERS Safety Report 23749600 (Version 4)
Quarter: 2024Q3

REPORT INFORMATION
  Report Type: Report from Study
  Country: CA (occurrence: CA)
  Receive Date: 20240416
  Receipt Date: 20240820
  Transmission Date: 20241017
  Serious: Yes (Other)
  Sender: JOHNSON AND JOHNSON
  Company Number: CA-JNJFOC-20231065238

PATIENT
  Age: 42 Year
  Sex: Female

DRUGS (1)
  1. REMICADE [Suspect]
     Active Substance: INFLIXIMAB
     Indication: Ankylosing spondylitis
     Dosage: NO SHOW FOR 23-OCT-23, APPOINTMENT
     Route: 041
     Dates: start: 20201107

REACTIONS (4)
  - Infectious mononucleosis [Recovered/Resolved]
  - Abdominal pain [Unknown]
  - Malaise [Recovering/Resolving]
  - Product dose omission issue [Unknown]
